FAERS Safety Report 10621253 (Version 1)
Quarter: 2014Q4

REPORT INFORMATION
  Report Type: Spontaneous
  Country: CA (occurrence: CA)
  Receive Date: 20141203
  Receipt Date: 20141203
  Transmission Date: 20150529
  Serious: Yes (Other)
  Sender: FDA-Public Use
  Company Number: CA-ROCHE-1497858

PATIENT
  Age: 69 Year
  Sex: Female

DRUGS (10)
  1. TAXOTERE [Suspect]
     Active Substance: DOCETAXEL
     Indication: PRODUCT USED FOR UNKNOWN INDICATION
     Route: 065
  2. ASCORBIC ACID. [Concomitant]
     Active Substance: ASCORBIC ACID
  3. CLONAZEPAM. [Concomitant]
     Active Substance: CLONAZEPAM
     Route: 048
  4. PERJETA [Suspect]
     Active Substance: PERTUZUMAB
     Indication: PRODUCT USED FOR UNKNOWN INDICATION
     Route: 065
  5. PANTOLOC [Concomitant]
     Active Substance: PANTOPRAZOLE SODIUM
     Route: 048
  6. ZESTORETIC [Concomitant]
     Active Substance: HYDROCHLOROTHIAZIDE\LISINOPRIL
     Route: 048
  7. DEXAMETHASONE. [Concomitant]
     Active Substance: DEXAMETHASONE
  8. ERGOCALCIFEROL. [Concomitant]
     Active Substance: ERGOCALCIFEROL
  9. HERCEPTIN [Suspect]
     Active Substance: TRASTUZUMAB
     Indication: PRODUCT USED FOR UNKNOWN INDICATION
     Route: 065
  10. PAXIL (CANADA) [Concomitant]
     Route: 048

REACTIONS (8)
  - Pyrexia [Unknown]
  - Eating disorder [Unknown]
  - Paraesthesia [Unknown]
  - Nasopharyngitis [Unknown]
  - Nausea [Unknown]
  - Renal pain [Unknown]
  - Abdominal pain [Unknown]
  - Urinary tract infection [Unknown]
